FAERS Safety Report 4598877-2 (Version None)
Quarter: 2005Q1

REPORT INFORMATION
  Report Type: 
  Country: None (occurrence: None)
  Receive Date: 20050301
  Receipt Date: 20050215
  Transmission Date: 20050727
  Serious: Yes (Other)
  Sender: FDA-Public Use
  Company Number: HQWYE998405AUG04

PATIENT
  Age: 75 Year
  Sex: Male
  Weight: 86.26 kg

DRUGS (20)
  1. PROTONIX [Suspect]
     Indication: GASTRIC ULCER
     Dosage: 40 MG 2X PER 1 DAY, ORAL
     Route: 048
     Dates: start: 20040217, end: 20040219
  2. METOPROLOL TARTRATE [Concomitant]
  3. DIAZEPAM [Concomitant]
  4. DIAZEPAM [Concomitant]
  5. DIAZEPAM [Concomitant]
  6. MOTRIN [Concomitant]
  7. HYDRALAZINE (HYDRALAZINE) [Concomitant]
  8. DULCOLAX [Concomitant]
  9. FLEET (SODIUM PHOSPHATE/SODIUM PHOSPHATE DIBASIC) [Concomitant]
  10. MAGNESIUM CITRATE (MAGNESIUM CITRATE) [Concomitant]
  11. FLAGYL [Concomitant]
  12. FLAGYL [Concomitant]
  13. CEFIZOX [Concomitant]
  14. TIGAN [Concomitant]
  15. DEMEROL [Concomitant]
  16. PHENERGAN [Concomitant]
  17. MORPHINE (MORPHINE) [Concomitant]
  18. SUFRALFATE (SUCRALFATE) [Concomitant]
  19. COLACE (DOCUSATE SODIUM) [Concomitant]
  20. VICODIN [Concomitant]

REACTIONS (24)
  - ALANINE AMINOTRANSFERASE INCREASED [None]
  - ANXIETY [None]
  - ARTHRALGIA [None]
  - ASTHENIA [None]
  - BLOOD ALKALINE PHOSPHATASE INCREASED [None]
  - CHOLESTASIS [None]
  - CONDITION AGGRAVATED [None]
  - DECREASED APPETITE [None]
  - DIZZINESS [None]
  - EATING DISORDER [None]
  - HEPATOCELLULAR DAMAGE [None]
  - HYPERBILIRUBINAEMIA [None]
  - INFLAMMATION [None]
  - LIVER DISORDER [None]
  - MENTAL IMPAIRMENT [None]
  - NECK PAIN [None]
  - PROTEIN URINE PRESENT [None]
  - SKIN DISORDER [None]
  - SKIN ULCER [None]
  - STOMACH DISCOMFORT [None]
  - THINKING ABNORMAL [None]
  - TRANSAMINASES INCREASED [None]
  - VERTIGO [None]
  - WEIGHT DECREASED [None]
